FAERS Safety Report 12047819 (Version 1)
Quarter: 2016Q1

REPORT INFORMATION
  Report Type: Spontaneous
  Country: US (occurrence: US)
  Receive Date: 20160208
  Receipt Date: 20160208
  Transmission Date: 20160526
  Serious: Yes (Disabling, Other)
  Sender: FDA-Public Use
  Company Number: US-REGENERON PHARMACEUTICALS, INC.-2015-14470

PATIENT

DRUGS (1)
  1. EYLEA [Suspect]
     Active Substance: AFLIBERCEPT
     Indication: RETINAL NEOVASCULARISATION
     Dosage: 0.05 ML MILLILITRE(S), INITIAL DOSE
     Route: 031
     Dates: start: 20151119, end: 20151125

REACTIONS (4)
  - Endophthalmitis [Recovered/Resolved]
  - Vitrectomy [Unknown]
  - Staphylococcal infection [Recovered/Resolved]
  - Blindness [Unknown]

NARRATIVE: CASE EVENT DATE: 20151123
